FAERS Safety Report 9151097 (Version 1)
Quarter: 2013Q1

REPORT INFORMATION
  Report Type: Spontaneous
  Country: US (occurrence: US)
  Receive Date: 20130308
  Receipt Date: 20130308
  Transmission Date: 20140127
  Serious: No
  Sender: FDA-Public Use
  Company Number: US-ASTRAZENECA-2013SE11209

PATIENT
  Sex: Male
  Weight: 104.3 kg

DRUGS (19)
  1. TOPROL XL [Suspect]
     Indication: HYPERTENSION
     Route: 048
     Dates: start: 20130120, end: 20130125
  2. TOPROL XL [Suspect]
     Indication: HYPERTENSION
     Route: 048
     Dates: start: 20130125, end: 20130130
  3. LOPRESSOR [Suspect]
     Route: 048
  4. LOPRESSOR [Suspect]
     Route: 048
     Dates: start: 20130130
  5. LOPRESSOR [Suspect]
     Route: 048
  6. PREVICID [Concomitant]
     Indication: GASTROOESOPHAGEAL REFLUX DISEASE
  7. FOLIC ACID [Concomitant]
     Indication: RHEUMATOID ARTHRITIS
  8. CARDIZEM [Concomitant]
     Indication: BLOOD PRESSURE
  9. CARDIZEM [Concomitant]
     Indication: HEART RATE
  10. TAMBACOR [Concomitant]
     Indication: ARRHYTHMIA
  11. ADVIR [Concomitant]
     Indication: EMPHYSEMA
  12. LASIX [Concomitant]
  13. B6 [Concomitant]
     Indication: NEUROPATHY PERIPHERAL
  14. COUMADIN [Concomitant]
     Indication: CEREBROVASCULAR ACCIDENT
  15. FLOMAX [Concomitant]
     Indication: BENIGN PROSTATIC HYPERPLASIA
  16. LIPITOR [Concomitant]
     Indication: BLOOD CHOLESTEROL INCREASED
  17. ZANTAC [Concomitant]
     Indication: GASTROOESOPHAGEAL REFLUX DISEASE
  18. SINGULAIR [Concomitant]
     Indication: MULTIPLE ALLERGIES
  19. METHOTREXATE [Concomitant]

REACTIONS (5)
  - Blood pressure increased [Unknown]
  - Heart rate increased [Unknown]
  - Pollakiuria [Unknown]
  - Sleep disorder [Unknown]
  - Drug ineffective [Unknown]
